FAERS Safety Report 10376834 (Version 1)
Quarter: 2014Q1

REPORT INFORMATION
  Report Type: Spontaneous
  Country: US (occurrence: None)
  Receive Date: 20140306
  Receipt Date: 20140306
  Transmission Date: 20141002
  Serious: Yes (Other)
  Sender: FDA-Public Use
  Company Number: 163-21880-13122354

PATIENT
  Age: 73 Year
  Sex: Female
  Weight: 61 kg

DRUGS (23)
  1. REVLIMID (LENALIDOMIDE) (25 MILLIGRAM, CAPSULES) [Suspect]
     Indication: PLASMA CELL MYELOMA
     Dosage: 25MG, 1 IN 1D, PO
     Route: 048
     Dates: start: 20120925
  2. IBUPROFEN [Concomitant]
  3. VALIUM (DIAZEPAM) [Concomitant]
  4. RANITIDINE [Concomitant]
  5. PHILLIPS MILK OF MAGNESIA (MAGNESIUM HYDROXIDE) [Concomitant]
  6. ALEVE (NAPROXEN SODIUM) [Concomitant]
  7. METAMUCIL (ISPAGHULA) [Concomitant]
  8. CENTURY MULTI VITAMINS (MULTI VITAMIN + MINERAL) [Concomitant]
  9. FOLIC ACID [Concomitant]
  10. EC ASPIRIN (ACETYLSALICYLIC ACID) [Concomitant]
  11. CVS VITAMIN C (ASCORBIC ACID) [Concomitant]
  12. OXYCODONE HCL (OXYCODONE HYDROCHLORIDE) [Concomitant]
  13. SENNA LAX (SENNOSIDE A+B) [Concomitant]
  14. METOPROLOL/HCTZ (CO-BETALOC) [Concomitant]
  15. DIOVAN (VALSARTAN) [Concomitant]
  16. CEFUROXIME AXETIL [Concomitant]
  17. FLORASTOR (SACCHAROMYCES BOULARDII) [Concomitant]
  18. HYDROXYZINE HCL (HYDROXYZINE HYDROCHLORIDE) [Concomitant]
  19. CLARITIN (LORATADINE) [Concomitant]
  20. DEXAMETHASONE [Concomitant]
  21. ZOMETA (ZOLEDRONIC ACID) [Concomitant]
  22. GAVISCON [Concomitant]
  23. TRAMADOL HCL (TRAMADOL HYDROCHLORIDE) [Concomitant]

REACTIONS (1)
  - Atrial fibrillation [None]
